FAERS Safety Report 6905878-5 (Version None)
Quarter: 2010Q3

REPORT INFORMATION
  Report Type: 
  Country: None (occurrence: None)
  Receive Date: 20100708
  Receipt Date: 20100420
  Transmission Date: 20110219
  Serious: Yes (Other)
  Sender: FDA-Public Use
  Company Number: 2010050093

PATIENT
  Sex: Male
  Weight: 83.9 kg

DRUGS (1)
  1. CHANTIX [Suspect]
     Indication: SMOKING CESSATION THERAPY
     Dosage: ORAL
     Route: 048
     Dates: end: 20100401

REACTIONS (5)
  - ABNORMAL DREAMS [None]
  - AFFECTIVE DISORDER [None]
  - AGITATION [None]
  - SLEEP DISORDER [None]
  - THINKING ABNORMAL [None]
